FAERS Safety Report 15928489 (Version 1)
Quarter: 2019Q1

REPORT INFORMATION
  Report Type: Spontaneous
  Country: US (occurrence: US)
  Receive Date: 20190206
  Receipt Date: 20190206
  Transmission Date: 20190417
  Serious: No
  Sender: FDA-Public Use
  Company Number: US-TEVA-2019-US-996457

PATIENT
  Sex: Female

DRUGS (4)
  1. TEVA CLONAZEPAM [Suspect]
     Active Substance: CLONAZEPAM
     Indication: ANXIETY
     Route: 065
  2. TEVA CLONAZEPAM [Suspect]
     Active Substance: CLONAZEPAM
     Indication: PANIC DISORDER
  3. TEVA CLONAZEPAM [Suspect]
     Active Substance: CLONAZEPAM
     Indication: SLEEP DISORDER
  4. TEVA CLONAZEPAM [Suspect]
     Active Substance: CLONAZEPAM
     Indication: POST-TRAUMATIC STRESS DISORDER

REACTIONS (6)
  - Nervousness [Unknown]
  - Agitation [Unknown]
  - Condition aggravated [Unknown]
  - Tremor [Unknown]
  - Chest discomfort [Unknown]
  - Drug ineffective [Unknown]
